FAERS Safety Report 6051219-8 (Version None)
Quarter: 2009Q1

REPORT INFORMATION
  Report Type: 
  Country: None (occurrence: None)
  Receive Date: 20090121
  Receipt Date: 20090105
  Transmission Date: 20090719
  Serious: Yes (Hospitalization)
  Sender: FDA-Public Use
  Company Number: 2009000002

PATIENT
  Age: 74 Year
  Sex: Male

DRUGS (10)
  1. ERLOTINIB (ERLOTINIB) (TABLET) (ERLOTINIB) [Suspect]
     Indication: NON-SMALL CELL LUNG CANCER
     Dosage: (150 MG, QD), ORAL
     Route: 048
     Dates: start: 20081016
  2. CISPLATIN [Suspect]
     Dosage: INTRAVENOUS
     Route: 042
  3. GEMCITABINE [Suspect]
     Dosage: INTRAVENOUS
     Route: 042
  4. GLYBURIDE [Concomitant]
  5. METFORMIN HCL [Concomitant]
  6. ASPIRIN [Concomitant]
  7. PREVACID [Concomitant]
  8. MAXERAN (METOCLOPRAMIDE HYDROCHLORIDE) [Concomitant]
  9. MAVIK [Concomitant]
  10. LIPITOR [Concomitant]

REACTIONS (11)
  - AGITATION [None]
  - APNOEIC ATTACK [None]
  - BLOOD LACTATE DEHYDROGENASE INCREASED [None]
  - BLOOD MAGNESIUM DECREASED [None]
  - BLOOD PRESSURE INCREASED [None]
  - BUNDLE BRANCH BLOCK RIGHT [None]
  - CONVULSION [None]
  - GLASGOW COMA SCALE ABNORMAL [None]
  - PLEURAL EFFUSION [None]
  - PLEURAL FIBROSIS [None]
  - TROPONIN T INCREASED [None]
